FAERS Safety Report 7228078-0 (Version None)
Quarter: 2011Q1

REPORT INFORMATION
  Report Type: 
  Country: None (occurrence: None)
  Receive Date: 20110114
  Receipt Date: 20110104
  Transmission Date: 20110831
  Serious: Yes (Other)
  Sender: FDA-Public Use
  Company Number: US-MYLANLABS-2011S1000235

PATIENT
  Age: 36 Year
  Sex: Female

DRUGS (7)
  1. DARVOCET [Concomitant]
     Indication: MIGRAINE
     Dosage: NOT TAKEN ON 02-JAN-2010
  2. KEFLEX [Concomitant]
     Dosage: ONE DOESE ONLY
     Dates: start: 20110102
  3. VENTOLIN [Concomitant]
     Dates: start: 20110102
  4. ALBUTEROL SULFATE [Suspect]
     Indication: PNEUMONIA
     Route: 055
     Dates: start: 20110102, end: 20110102
  5. PROVENTIL [Concomitant]
     Dates: start: 20110102
  6. IBUPROFEN [Concomitant]
     Dosage: NOT TAKEN ON 02-JAN-2010
  7. PROMETHAZINE [Concomitant]
     Dates: start: 20110102

REACTIONS (5)
  - DEHYDRATION [None]
  - PAIN IN EXTREMITY [None]
  - TACHYCARDIA [None]
  - PARAESTHESIA [None]
  - DYSPNOEA [None]
